FAERS Safety Report 5042130-X (Version None)
Quarter: 2006Q2

REPORT INFORMATION
  Report Type: 
  Country: None (occurrence: None)
  Receive Date: 20060627
  Receipt Date: 20060610
  Transmission Date: 20061013
  Serious: Yes (Other)
  Sender: FDA-Public Use
  Company Number: US200606003459

PATIENT
  Age: 79 Year
  Sex: Female

DRUGS (2)
  1. FORTEO [Suspect]
  2. FORTEO [Concomitant]

REACTIONS (7)
  - COUGH [None]
  - HIP ARTHROPLASTY [None]
  - INTERVERTEBRAL DISC OPERATION [None]
  - MULTIPLE FRACTURES [None]
  - SHOULDER OPERATION [None]
  - SNEEZING [None]
  - SURGERY [None]
